FAERS Safety Report 18917007 (Version 2)
Quarter: 2021Q1

REPORT INFORMATION
  Report Type: Spontaneous
  Country: US (occurrence: US)
  Receive Date: 20210219
  Receipt Date: 20210226
  Transmission Date: 20210420
  Serious: No
  Sender: FDA-Public Use
  Company Number: US-TEVA-2021-US-1873921

PATIENT
  Age: 27 Year
  Sex: Female
  Weight: 52.16 kg

DRUGS (10)
  1. AJOVY [Suspect]
     Active Substance: FREMANEZUMAB-VFRM
     Indication: MIGRAINE
     Dosage: STRENGTH: 225MG/1.5ML
     Route: 065
     Dates: start: 20210109
  2. DULOXETINE. [Concomitant]
     Active Substance: DULOXETINE
     Dosage: 90MG (30MG + 60MG)
  3. BUSPIRONE [Concomitant]
     Active Substance: BUSPIRONE HYDROCHLORIDE
     Dosage: ONCE TWICE A DAY AS NEEDED
  4. ASMANEX HSA [Concomitant]
     Dosage: 800 MICROGRAM DAILY; 200 MCG PER ACTUATION (2 PUFFS TWICE A DAY)
  5. COLACE [Concomitant]
     Active Substance: DOCUSATE SODIUM
     Dosage: 200 MILLIGRAM DAILY;
  6. METOPROLOL SUCC ER [Concomitant]
     Active Substance: METOPROLOL SUCCINATE
     Dosage: 50 MILLIGRAM DAILY;
  7. VENTOLIN HSA [Concomitant]
  8. NURTEC ODT [Concomitant]
     Active Substance: RIMEGEPANT SULFATE
  9. LEVOTHYROXINE. [Concomitant]
     Active Substance: LEVOTHYROXINE
     Dosage: .025 MILLIGRAM DAILY;
  10. HYDROXYZINE PAMOATE. [Concomitant]
     Active Substance: HYDROXYZINE PAMOATE
     Dosage: MAX 3 TIMES A DAY

REACTIONS (2)
  - Arthritis [Not Recovered/Not Resolved]
  - Pain [Not Recovered/Not Resolved]

NARRATIVE: CASE EVENT DATE: 202101
